FAERS Safety Report 4359817-4 (Version None)
Quarter: 2004Q2

REPORT INFORMATION
  Report Type: 
  Country: None (occurrence: None)
  Receive Date: 20040514
  Receipt Date: 20040511
  Transmission Date: 20050107
  Serious: Yes (Death)
  Sender: FDA-Public Use
  Company Number: USA-2003-0011447

PATIENT
  Age: 94 Year
  Sex: Female

DRUGS (1)
  1. MORPHINE SULFATE [Suspect]

REACTIONS (3)
  - ACCIDENTAL OVERDOSE [None]
  - PULMONARY EMBOLISM [None]
  - SPINAL FRACTURE [None]
